FAERS Safety Report 7358987-3 (Version None)
Quarter: 2011Q1

REPORT INFORMATION
  Report Type: 
  Country: None (occurrence: None)
  Receive Date: 20110317
  Receipt Date: 20110110
  Transmission Date: 20110831
  Serious: Yes (Other)
  Sender: FDA-Public Use
  Company Number: US-BAYER-2011-003496

PATIENT
  Sex: Female
  Weight: 58.957 kg

DRUGS (8)
  1. AMBIEN [Concomitant]
     Dosage: UNK UNK, PRN
  2. NORTREL 7/7/7 [Concomitant]
     Dosage: UNK
     Dates: start: 20070101, end: 20090701
  3. NORTREL 7/7/7 [Concomitant]
     Dosage: UNK
     Dates: start: 20110101
  4. ALPRAZOLAM [Concomitant]
  5. NECON [Concomitant]
  6. YAZ [Suspect]
     Dosage: UNK
     Dates: start: 20020101, end: 20070101
  7. YASMIN [Suspect]
     Dosage: UNK
     Dates: start: 20020101, end: 20070101
  8. ZOLPIDEM [Concomitant]

REACTIONS (2)
  - CHOLECYSTITIS CHRONIC [None]
  - GALLBLADDER DISORDER [None]
